FAERS Safety Report 7183078-4 (Version None)
Quarter: 2010Q4

REPORT INFORMATION
  Report Type: 
  Country: None (occurrence: None)
  Receive Date: 20101222
  Receipt Date: 20100806
  Transmission Date: 20110411
  Serious: No
  Sender: FDA-Public Use
  Company Number: A0874413A

PATIENT
  Age: 62 Year
  Sex: Male

DRUGS (5)
  1. RYTHMOL [Suspect]
     Indication: HEART RATE INCREASED
     Dosage: 300MG THREE TIMES PER DAY
     Route: 048
     Dates: start: 20000101
  2. LOPRESSOR [Concomitant]
  3. TRANXENE [Concomitant]
  4. MULTI-VITAMIN [Concomitant]
  5. NIACIN [Concomitant]

REACTIONS (3)
  - FEELING ABNORMAL [None]
  - MALAISE [None]
  - PULSE ABNORMAL [None]
